FAERS Safety Report 5887771-2 (Version None)
Quarter: 2008Q3

REPORT INFORMATION
  Report Type: 
  Country: None (occurrence: None)
  Receive Date: 20080918
  Receipt Date: 20080908
  Transmission Date: 20090109
  Serious: Yes (Other)
  Sender: FDA-Public Use
  Company Number: US-ROCHE-585463

PATIENT
  Age: 25 Year
  Sex: Male

DRUGS (3)
  1. CELLCEPT [Suspect]
     Indication: MYASTHENIA GRAVIS
     Route: 042
     Dates: start: 20080904
  2. PREDNISONE TAB [Concomitant]
  3. MESTINON [Concomitant]

REACTIONS (1)
  - MYASTHENIA GRAVIS [None]
